FAERS Safety Report 4905049-8 (Version None)
Quarter: 2006Q1

REPORT INFORMATION
  Report Type: 
  Country: None (occurrence: None)
  Receive Date: 20060208
  Receipt Date: 20051108
  Transmission Date: 20060701
  Serious: No
  Sender: FDA-Public Use
  Company Number: US-GLAXOSMITHKLINE-A0581468A

PATIENT
  Age: 48 Year
  Sex: Female

DRUGS (4)
  1. PAROXETINE HCL [Suspect]
     Indication: DEPRESSION
     Dosage: 10MG PER DAY
     Route: 048
  2. PAXIL [Suspect]
     Indication: DEPRESSION
     Dosage: 12.5MG PER DAY
     Route: 048
     Dates: start: 20030901
  3. KLONOPIN [Concomitant]
  4. LITHIUM [Concomitant]

REACTIONS (6)
  - DRUG ADMINISTRATION ERROR [None]
  - DRUG INEFFECTIVE [None]
  - DRUG WITHDRAWAL SYNDROME [None]
  - FEAR [None]
  - PANIC REACTION [None]
  - TREMOR [None]
